FAERS Safety Report 5776190-5 (Version None)
Quarter: 2008Q2

REPORT INFORMATION
  Report Type: 
  Country: None (occurrence: None)
  Receive Date: 20080613
  Receipt Date: 20080528
  Transmission Date: 20081010
  Serious: Yes (Death, Life-Threatening)
  Sender: FDA-Public Use
  Company Number: A-CH2008-20158

PATIENT
  Age: 58 Year
  Sex: Male

DRUGS (9)
  1. TRACLEER [Suspect]
     Indication: PULMONARY ARTERIAL HYPERTENSION
     Dosage: 62.5 MG, BID, ORAL; 62.5 MG, BID, ORAL; 125 MG, BID, ORAL
     Route: 048
     Dates: start: 20060626, end: 20060709
  2. TRACLEER [Suspect]
     Indication: PULMONARY ARTERIAL HYPERTENSION
     Dosage: 62.5 MG, BID, ORAL; 62.5 MG, BID, ORAL; 125 MG, BID, ORAL
     Route: 048
     Dates: start: 20060710, end: 20071220
  3. TRACLEER [Suspect]
     Indication: PULMONARY ARTERIAL HYPERTENSION
     Dosage: 62.5 MG, BID, ORAL; 62.5 MG, BID, ORAL; 125 MG, BID, ORAL
     Route: 048
     Dates: start: 20071221, end: 20080218
  4. VIAGRA [Concomitant]
  5. AMBROXOL (AMBROXOL) [Concomitant]
  6. WARFARIN SODIUM [Concomitant]
  7. MAGNESIUM (MAGNESIUM) [Concomitant]
  8. VERAPAMIL [Concomitant]
  9. CODEINE SUL TAB [Concomitant]

REACTIONS (2)
  - HEPATOMEGALY [None]
  - SUDDEN DEATH [None]
